FAERS Safety Report 18195297 (Version 1)
Quarter: 2020Q3

REPORT INFORMATION
  Report Type: Spontaneous
  Country: DE (occurrence: DE)
  Receive Date: 20200825
  Receipt Date: 20200825
  Transmission Date: 20201103
  Serious: Yes (Hospitalization)
  Sender: FDA-Public Use
  Company Number: DE-SA-2020SA221693

PATIENT

DRUGS (9)
  1. METFORMIN HYDROCHLORIDE. [Suspect]
     Active Substance: METFORMIN HYDROCHLORIDE
     Dosage: 1000 MG, BID,1?0?1?0
     Route: 048
  2. ARGANIA SPINOSA [Concomitant]
     Dosage: 5.67|1.42|220|25|40 MG/?G, 2?0?0?0, TROPFEN
     Route: 048
  3. SUCONTRAL [Suspect]
     Active Substance: DIETARY SUPPLEMENT\HERBALS
     Dosage: 1?0?1?0
     Route: 048
  4. DOCONEXENT;ICOSAPENT [Concomitant]
     Active Substance: DOCONEXENT\ICOSAPENT
     Dosage: 1?0?1?0
     Route: 048
  5. GLIMEPIRIDE. [Suspect]
     Active Substance: GLIMEPIRIDE
     Dosage: 0.5?0?0.5?0
     Route: 048
  6. ONGLYZA [Suspect]
     Active Substance: SAXAGLIPTIN HYDROCHLORIDE
     Dosage: 5 MG,1?0?0?0 TABLET
     Route: 048
  7. VITAMIN B?KOMPLEX [Concomitant]
     Dosage: 2?0?0?0
     Route: 048
  8. LEVOTHYROXINUM NATRICUM [Concomitant]
     Dosage: 75 ?G, 1?0?0?0
     Route: 048
  9. EISEN [FERROUS GLUCONATE] [Concomitant]
     Active Substance: FERROUS GLUCONATE
     Dosage: 25 MG, QD,1?0?0?0
     Route: 048

REACTIONS (5)
  - Dyspnoea [Unknown]
  - Decreased appetite [Unknown]
  - Dehydration [Unknown]
  - Tachycardia [Unknown]
  - General physical health deterioration [Unknown]
